FAERS Safety Report 24400962 (Version 1)
Quarter: 2024Q4

REPORT INFORMATION
  Report Type: Spontaneous
  Country: US (occurrence: US)
  Receive Date: 20241006
  Receipt Date: 20241006
  Transmission Date: 20250115
  Serious: No
  Sender: TEVA
  Company Number: US-TEVA-VS-3244659

PATIENT
  Sex: Female

DRUGS (1)
  1. PROAIR HFA [Suspect]
     Active Substance: ALBUTEROL SULFATE
     Indication: Asthma
     Dosage: 90 MCG/DOSE
     Route: 055

REACTIONS (8)
  - Swelling face [Unknown]
  - Rash [Unknown]
  - Lacrimation increased [Unknown]
  - Reaction to preservatives [Unknown]
  - Nasopharyngitis [Unknown]
  - Perfume sensitivity [Unknown]
  - Eye pruritus [Unknown]
  - Cough [Unknown]
